FAERS Safety Report 19900719 (Version 1)
Quarter: 2021Q3

REPORT INFORMATION
  Report Type: Spontaneous
  Country: US (occurrence: US)
  Receive Date: 20210930
  Receipt Date: 20210930
  Transmission Date: 20211014
  Serious: No
  Sender: FDA-Public Use
  Company Number: None

PATIENT
  Age: 64 Year
  Sex: Female

DRUGS (1)
  1. ENBREL [Suspect]
     Active Substance: ETANERCEPT
     Dosage: ?          OTHER FREQUENCY:N/A;?
     Route: 058
     Dates: start: 20210514, end: 202109

REACTIONS (2)
  - Therapy interrupted [None]
  - Malignant melanoma [None]

NARRATIVE: CASE EVENT DATE: 20210531
